FAERS Safety Report 25132231 (Version 1)
Quarter: 2025Q1

REPORT INFORMATION
  Report Type: Report from Study
  Country: BR (occurrence: BR)
  Receive Date: 20250328
  Receipt Date: 20250328
  Transmission Date: 20250409
  Serious: No
  Sender: JOHNSON AND JOHNSON
  Company Number: BR-JNJFOC-20250242080

PATIENT
  Age: 70 Year
  Sex: Male

DRUGS (1)
  1. TALVEY [Suspect]
     Active Substance: TALQUETAMAB-TGVS
     Indication: Plasma cell myeloma
     Dosage: DOSAGE: 1 AMPOULE OF 3 MG D1, 2AMPOULES OF 3 MG D4, 1 AMPOULE OF 40 MG D7, 2 AMPOULES OF 40 MG D10 O
     Route: 058

REACTIONS (2)
  - Product prescribing error [Unknown]
  - Off label use [Unknown]
